FAERS Safety Report 16172268 (Version 1)
Quarter: 2019Q2

REPORT INFORMATION
  Report Type: Spontaneous
  Country: GB (occurrence: GB)
  Receive Date: 20190409
  Receipt Date: 20190409
  Transmission Date: 20190711
  Serious: Yes (Other)
  Sender: FDA-Public Use
  Company Number: GB-ACCORD-119402

PATIENT
  Age: 81 Year
  Sex: Male

DRUGS (2)
  1. FELODIPINE. [Concomitant]
     Active Substance: FELODIPINE
  2. FLUOROURACIL. [Suspect]
     Active Substance: FLUOROURACIL
     Indication: SQUAMOUS CELL CARCINOMA
     Route: 061
     Dates: start: 20180817, end: 20180830

REACTIONS (1)
  - Erythema multiforme [Not Recovered/Not Resolved]

NARRATIVE: CASE EVENT DATE: 20180830
